FAERS Safety Report 7936004-1 (Version None)
Quarter: 2011Q4

REPORT INFORMATION
  Report Type: 
  Country: None (occurrence: None)
  Receive Date: 20111123
  Receipt Date: 20111111
  Transmission Date: 20120403
  Serious: Yes (Hospitalization)
  Sender: FDA-Public Use
  Company Number: US-ELI_LILLY_AND_COMPANY-US201111005399

PATIENT
  Age: 76 Year
  Sex: Female

DRUGS (18)
  1. CALCIUM [Concomitant]
  2. ADVAIR DISKUS 100/50 [Concomitant]
  3. LEVOTHYROXINE SODIUM [Concomitant]
  4. LOVAZA [Concomitant]
  5. SIMVASTATIN [Concomitant]
  6. VITAMIN D [Concomitant]
  7. COUMADIN [Concomitant]
  8. HYDROCODONE BITARTRATE [Concomitant]
  9. MAGNESIUM OXIDE [Concomitant]
  10. FLUDROCORTISON [Concomitant]
  11. FORTEO [Suspect]
     Indication: OSTEOPOROSIS
     Dosage: 20 UG, QD
     Route: 065
  12. RISPERDAL [Concomitant]
  13. EFFEXOR [Concomitant]
  14. MULTI-VITAMIN [Concomitant]
  15. GENTALYN [Concomitant]
  16. FLONASE [Concomitant]
  17. PREDNISONE [Concomitant]
  18. TRAMADOL HCL [Concomitant]

REACTIONS (1)
  - SPINAL FRACTURE [None]
